FAERS Safety Report 14711439 (Version 3)
Quarter: 2018Q2

REPORT INFORMATION
  Report Type: Spontaneous
  Country: GB (occurrence: GB)
  Receive Date: 20180403
  Receipt Date: 20180503
  Transmission Date: 20180711
  Serious: Yes (Death, Life-Threatening, Hospitalization, Other)
  Sender: FDA-Public Use
  Company Number: GB-BRISTOL-MYERS SQUIBB COMPANY-BMS-2018-025667

PATIENT
  Age: 54 Year
  Sex: Male

DRUGS (7)
  1. FLUCONAZOLE. [Suspect]
     Active Substance: FLUCONAZOLE
     Indication: PROPHYLAXIS
     Route: 065
  2. RITUXIMAB. [Concomitant]
     Active Substance: RITUXIMAB
     Indication: LYMPHOMA
     Route: 065
  3. METHYLPREDNISOLONE. [Suspect]
     Active Substance: METHYLPREDNISOLONE
     Indication: RASH MACULO-PAPULAR
     Dosage: 1 G, QD
     Route: 042
  4. NIVOLUMAB [Suspect]
     Active Substance: NIVOLUMAB
     Indication: LYMPHOMA
     Dosage: 3 MG/KG, UNK
     Route: 065
  5. ALLOPURINOL. [Suspect]
     Active Substance: ALLOPURINOL
     Indication: PROPHYLAXIS
     Route: 065
  6. COTRIMOXAZOLE [Suspect]
     Active Substance: SULFAMETHOXAZOLE\TRIMETHOPRIM
     Indication: PROPHYLAXIS
     Route: 065
  7. ZEVALIN [Concomitant]
     Active Substance: IBRITUMOMAB TIUXETAN
     Indication: LYMPHOMA
     Route: 065

REACTIONS (3)
  - Toxic epidermal necrolysis [Fatal]
  - Multiple organ dysfunction syndrome [Fatal]
  - Product use in unapproved indication [Unknown]
